FAERS Safety Report 5162170-X (Version None)
Quarter: 2006Q4

REPORT INFORMATION
  Report Type: 
  Country: None (occurrence: None)
  Receive Date: 20061121
  Receipt Date: 20061110
  Transmission Date: 20070319
  Serious: Yes (Other)
  Sender: FDA-Public Use
  Company Number: 2006138508

PATIENT
  Age: 15 Year
  Sex: Male

DRUGS (1)
  1. LISTERINE [Suspect]
     Dosage: ONE BOTTLE ONCE, ORAL
     Route: 048
     Dates: start: 20061001, end: 20061001

REACTIONS (2)
  - ABDOMINAL PAIN UPPER [None]
  - INCORRECT ROUTE OF DRUG ADMINISTRATION [None]
